FAERS Safety Report 16526080 (Version 1)
Quarter: 2019Q3

REPORT INFORMATION
  Report Type: Spontaneous
  Country: US (occurrence: US)
  Receive Date: 20190523
  Receipt Date: 20190523
  Transmission Date: 20191004
  Serious: No
  Sender: FDA-Public Use
  Company Number: None

PATIENT
  Age: 57 Year
  Sex: Male

DRUGS (1)
  1. GLATIRAMER 40MG FS INJ  (12/BOX) [Suspect]
     Active Substance: GLATIRAMER ACETATE
     Route: 058
     Dates: start: 20190502

REACTIONS (3)
  - Therapy cessation [None]
  - Product substitution issue [None]
  - Hospitalisation [None]

NARRATIVE: CASE EVENT DATE: 20190523
